FAERS Safety Report 10093608 (Version 1)
Quarter: 2014Q2

REPORT INFORMATION
  Report Type: Spontaneous
  Country: US (occurrence: US)
  Receive Date: 20140421
  Receipt Date: 20140421
  Transmission Date: 20141212
  Serious: No
  Sender: FDA-Public Use
  Company Number: US-SA-2014SA007801

PATIENT
  Age: 41 Year
  Sex: Male

DRUGS (1)
  1. ALLEGRA 24 HOUR [Suspect]
     Indication: HYPERSENSITIVITY
     Route: 048
     Dates: start: 201401

REACTIONS (6)
  - Nasal congestion [Not Recovered/Not Resolved]
  - Dyspnoea [Unknown]
  - Insomnia [Unknown]
  - Eye swelling [Unknown]
  - Dry mouth [Unknown]
  - Therapeutic response decreased [Unknown]
